FAERS Safety Report 8348086-6 (Version None)
Quarter: 2012Q2

REPORT INFORMATION
  Report Type: 
  Country: None (occurrence: None)
  Receive Date: 20120509
  Receipt Date: 20120426
  Transmission Date: 20120825
  Serious: Yes (Hospitalization)
  Sender: FDA-Public Use
  Company Number: US-VIROPHARMA INCORPORATED-20120423CINRY2900

PATIENT
  Sex: Female

DRUGS (1)
  1. CINRYZE [Suspect]
     Indication: HEREDITARY ANGIOEDEMA
     Dates: start: 20100101

REACTIONS (6)
  - INCORRECT DOSE ADMINISTERED [None]
  - MALAISE [None]
  - PYREXIA [None]
  - DRUG DOSE OMISSION [None]
  - DIARRHOEA [None]
  - PAIN [None]
